FAERS Safety Report 7931679-5 (Version None)
Quarter: 2011Q4

REPORT INFORMATION
  Report Type: 
  Country: None (occurrence: None)
  Receive Date: 20111121
  Receipt Date: 20111110
  Transmission Date: 20120403
  Serious: Yes (Hospitalization)
  Sender: FDA-Public Use
  Company Number: PHBS2004IT15250

PATIENT
  Sex: Female

DRUGS (2)
  1. CARVEDILOL [Concomitant]
     Dosage: 25 MG, QD
     Route: 048
     Dates: start: 20020101
  2. GLEEVEC [Suspect]
     Indication: CHRONIC MYELOID LEUKAEMIA
     Dosage: 400 MG,
     Route: 048
     Dates: start: 20020201, end: 20050501

REACTIONS (1)
  - LICHENOID KERATOSIS [None]
